FAERS Safety Report 14471939 (Version 2)
Quarter: 2018Q1

REPORT INFORMATION
  Report Type: Spontaneous
  Country: US (occurrence: US)
  Receive Date: 20180131
  Receipt Date: 20180228
  Transmission Date: 20180509
  Serious: Yes (Hospitalization)
  Sender: FDA-Public Use
  Company Number: US-TAIHO ONCOLOGY INC-EU-2018-00104

PATIENT
  Sex: Male

DRUGS (3)
  1. LONSURF [Suspect]
     Active Substance: TIPIRACIL HYDROCHLORIDE\TRIFLURIDINE
     Indication: COLON CANCER
     Route: 048
     Dates: start: 20170406, end: 201707
  2. PARACETAMOL/HYDROCODONE BITARTRATE [Concomitant]
     Dosage: NI
  3. ADVIL [Concomitant]
     Active Substance: IBUPROFEN
     Dosage: NI

REACTIONS (4)
  - Vomiting [Unknown]
  - Malaise [Unknown]
  - Viral infection [Unknown]
  - Nausea [Unknown]

NARRATIVE: CASE EVENT DATE: 2017
